FAERS Safety Report 6443255-4 (Version None)
Quarter: 2009Q4

REPORT INFORMATION
  Report Type: 
  Country: None (occurrence: None)
  Receive Date: 20091117
  Receipt Date: 20091111
  Transmission Date: 20100525
  Serious: Yes (Hospitalization)
  Sender: FDA-Public Use
  Company Number: GXBR2009US02054

PATIENT
  Sex: Male
  Weight: 6.53 kg

DRUGS (1)
  1. ROCURONIUM BROMIDE (NGX) [Suspect]
     Indication: ANAESTHESIA
     Dosage: UNK MG, UNK
     Dates: start: 20091023, end: 20091023

REACTIONS (7)
  - BRADYCARDIA [None]
  - BRAIN INJURY [None]
  - CONVULSION [None]
  - DELAYED RECOVERY FROM ANAESTHESIA [None]
  - HYPERGLYCAEMIA [None]
  - MULTI-ORGAN FAILURE [None]
  - PYREXIA [None]
